FAERS Safety Report 14768064 (Version 4)
Quarter: 2018Q3

REPORT INFORMATION
  Report Type: Spontaneous
  Country: JP (occurrence: JP)
  Receive Date: 20180417
  Receipt Date: 20180924
  Transmission Date: 20181010
  Serious: Yes (Death, Hospitalization, Other)
  Sender: FDA-Public Use
  Company Number: JP-BRISTOL-MYERS SQUIBB COMPANY-BMS-2018-034542

PATIENT
  Age: 74 Year
  Sex: Male

DRUGS (1)
  1. OPDIVO [Suspect]
     Active Substance: NIVOLUMAB
     Indication: NON-SMALL CELL LUNG CANCER
     Dosage: 3 MG/KG, UNK
     Route: 041
     Dates: start: 20171004

REACTIONS (11)
  - Cholecystitis [Unknown]
  - Emphysema [Unknown]
  - Malignant neoplasm progression [Fatal]
  - Ascites [Unknown]
  - Intracardiac thrombus [Unknown]
  - Pleural effusion [Unknown]
  - Cholelithiasis [Unknown]
  - Enterocolitis [Recovering/Resolving]
  - Interstitial lung disease [Recovering/Resolving]
  - Diverticulum intestinal [Unknown]
  - Cytomegalovirus test positive [Unknown]

NARRATIVE: CASE EVENT DATE: 20180104
